FAERS Safety Report 9137177 (Version 1)
Quarter: 2013Q1

REPORT INFORMATION
  Report Type: Spontaneous
  Country: US (occurrence: US)
  Receive Date: 20130219
  Receipt Date: 20130219
  Transmission Date: 20140127
  Serious: No
  Sender: FDA-Public Use
  Company Number: US-BRISTOL-MYERS SQUIBB COMPANY-17137928

PATIENT
  Age: 77 Year
  Sex: Female
  Weight: 74.83 kg

DRUGS (16)
  1. ORENCIA FOR INJ [Suspect]
     Dosage: 1DF: 125MG/1ML PFS (4PACK)
     Route: 058
  2. XYZAL [Concomitant]
     Dosage: XYZAL TAB 5MG
  3. LASIX [Concomitant]
     Dosage: LASIX TAB
  4. PREDNISONE [Concomitant]
     Dosage: PREDNISONE TAB
  5. NORVASC [Concomitant]
     Dosage: TAB
  6. NITROGLYCERIN [Concomitant]
     Dosage: NITROGLYCER DIS
  7. TRAMADOL HCL [Concomitant]
     Dosage: TAB
  8. ALLOPURINOL [Concomitant]
     Dosage: TAB
  9. PLAVIX [Concomitant]
     Dosage: TAB
  10. ZANTAC [Concomitant]
     Dosage: ZANTAC 75 TAB
  11. MULTIVITAMIN [Concomitant]
     Dosage: TAB
  12. POTASSIUM [Concomitant]
     Dosage: TAB
  13. VITAMIN D3 [Concomitant]
     Dosage: CAP?1DF: 2000UNIT
  14. IRON [Concomitant]
     Dosage: TAB
  15. VITAMIN D [Concomitant]
     Dosage: TAB 400
  16. ATACAND [Concomitant]
     Dosage: TAB

REACTIONS (1)
  - Sinusitis [Recovering/Resolving]
